FAERS Safety Report 23241608 (Version 1)
Quarter: 2023Q4

REPORT INFORMATION
  Report Type: Spontaneous
  Country: ES (occurrence: ES)
  Receive Date: 20231129
  Receipt Date: 20231129
  Transmission Date: 20240110
  Serious: Yes (Hospitalization, Other)
  Sender: FDA-Public Use
  Company Number: ES-PFIZER INC-PV202300182464

PATIENT
  Age: 81 Year
  Sex: Female
  Weight: 52 kg

DRUGS (10)
  1. LETROZOLE [Suspect]
     Active Substance: LETROZOLE
     Indication: Breast cancer metastatic
     Dosage: 2.5 MILLIGRAM, QD
     Route: 065
     Dates: start: 20230713
  2. PALBOCICLIB [Suspect]
     Active Substance: PALBOCICLIB
     Indication: Breast cancer metastatic
     Dosage: 100 MG, 1X/DAY; 3 WEEKS ON/1 WEEK OFF
     Route: 065
     Dates: start: 20230713
  3. PALBOCICLIB [Suspect]
     Active Substance: PALBOCICLIB
     Dosage: 100 MG, 1X/DAY; 3 WEEKS ON/1 WEEK OFF
     Route: 065
     Dates: start: 20230830
  4. PALBOCICLIB [Suspect]
     Active Substance: PALBOCICLIB
     Dosage: 75 MG, 1X/DAY; 3 WEEKS ON/1 WEEK OFF FROM CYCLE 4
     Route: 065
  5. PALBOCICLIB [Suspect]
     Active Substance: PALBOCICLIB
     Dosage: 75 MG, 1X/DAY; 3 WEEKS ON/2 WEEK OFF FROM CYCLE 10
     Route: 065
  6. CODEINE PHOSPHATE [Concomitant]
     Active Substance: CODEINE PHOSPHATE
     Dosage: 1 DOSAGE FORM, TID, EVERY 8 HOURS
     Route: 065
  7. ONDANSETRON [Concomitant]
     Active Substance: ONDANSETRON
     Dosage: 4 MG, TID,EVERY 8 HOURS IF NEEDED
     Route: 065
  8. OMEPRAZOLE [Concomitant]
     Active Substance: OMEPRAZOLE
     Dosage: 20 MILLIGRAM, QD, EVERY 24 HOURS
     Route: 065
  9. AMLODIPINE [Concomitant]
     Active Substance: AMLODIPINE BESYLATE
     Dosage: 5 MG, 1X/DAY, EVERY 24 HOURS
     Route: 065
  10. METOCLOPRAMIDE [Concomitant]
     Active Substance: METOCLOPRAMIDE
     Dosage: 10 MILLIGRAM, TID, EVERY 8 HOURS IF NEEDED
     Route: 065

REACTIONS (7)
  - Pyelonephritis acute [Recovered/Resolved]
  - Neutropenia [Unknown]
  - Dry skin [Unknown]
  - Arthralgia [Unknown]
  - Alopecia [Unknown]
  - Asthenia [Unknown]
  - Mucosal dryness [Unknown]
